FAERS Safety Report 9741438 (Version 2)
Quarter: 2013Q4

REPORT INFORMATION
  Report Type: Spontaneous
  Country: HK (occurrence: HK)
  Receive Date: 20131209
  Receipt Date: 20131209
  Transmission Date: 20140711
  Serious: Yes (Hospitalization)
  Sender: FDA-Public Use
  Company Number: PHHY2013HK011790

PATIENT
  Age: 59 Year
  Sex: Female

DRUGS (2)
  1. EXELON PATCH [Suspect]
     Indication: DEMENTIA
     Dosage: 1 DF DAILY
     Route: 062
  2. EXELON PATCH [Suspect]
     Dosage: 1 DF DAILY
     Route: 062

REACTIONS (5)
  - Confusional state [Recovered/Resolved]
  - Vomiting [Recovered/Resolved]
  - Asthenia [Recovered/Resolved]
  - Heart rate decreased [Recovered/Resolved]
  - Incorrect dose administered [Unknown]
